FAERS Safety Report 7430696-1 (Version None)
Quarter: 2011Q2

REPORT INFORMATION
  Report Type: 
  Country: None (occurrence: None)
  Receive Date: 20110421
  Receipt Date: 20100524
  Transmission Date: 20111010
  Serious: No
  Sender: FDA-Public Use
  Company Number: US-ASTRAZENECA-2010SE23804

PATIENT
  Sex: Female

DRUGS (3)
  1. TOPROL-XL [Suspect]
     Route: 048
  2. METOPROLOL SUCCINATE [Suspect]
     Indication: MITRAL VALVE PROLAPSE
     Route: 048
  3. METOPROLOL SUCCINATE [Suspect]
     Route: 048

REACTIONS (4)
  - PALPITATIONS [None]
  - DYSPNOEA [None]
  - DRUG DOSE OMISSION [None]
  - BLOOD PRESSURE INCREASED [None]
